FAERS Safety Report 6609105-8 (Version None)
Quarter: 2010Q1

REPORT INFORMATION
  Report Type: 
  Country: None (occurrence: None)
  Receive Date: 20100226
  Receipt Date: 20100226
  Transmission Date: 20100710
  Serious: Yes (Life-Threatening, Hospitalization)
  Sender: FDA-Public Use
  Company Number: None

PATIENT
  Age: 58 Year
  Sex: Male
  Weight: 117 kg

DRUGS (1)
  1. PARAFON FORTE [Suspect]
     Indication: BACK PAIN
     Dosage: ORAL 047
     Route: 048

REACTIONS (7)
  - COAGULOPATHY [None]
  - HEADACHE [None]
  - JAUNDICE [None]
  - LIVER TRANSPLANT [None]
  - MALAISE [None]
  - MENTAL STATUS CHANGES [None]
  - VOMITING [None]
